FAERS Safety Report 14671009 (Version 1)
Quarter: 2018Q1

REPORT INFORMATION
  Report Type: Spontaneous
  Country: US (occurrence: US)
  Receive Date: 20180321
  Receipt Date: 20180321
  Transmission Date: 20180509
  Serious: Yes (Other)
  Sender: FDA-Public Use
  Company Number: None

PATIENT
  Age: 59 Year
  Sex: Female
  Weight: 107.5 kg

DRUGS (1)
  1. GENERIC LIALDA (MESALAMINE) [Suspect]
     Active Substance: MESALAMINE

REACTIONS (3)
  - Condition aggravated [None]
  - Colitis ulcerative [None]
  - Product substitution issue [None]

NARRATIVE: CASE EVENT DATE: 20171016
